FAERS Safety Report 9193792 (Version 1)
Quarter: 2013Q1

REPORT INFORMATION
  Report Type: Spontaneous
  Country: US (occurrence: None)
  Receive Date: 20130325
  Receipt Date: 20130325
  Transmission Date: 20140127
  Serious: No
  Sender: FDA-Public Use
  Company Number: None

PATIENT
  Sex: 0

DRUGS (3)
  1. VYVANSE 70 MG SHIRE [Suspect]
     Indication: ATTENTION DEFICIT/HYPERACTIVITY DISORDER
     Dosage: VYVANSE 40 MG QD PO
     Route: 048
  2. CONCERTA [Suspect]
     Dosage: CONCERTA 54 MO QD PO
     Route: 048
  3. CONCERTA [Suspect]
     Dosage: CONCERTA 27MG QD PO
     Route: 048

REACTIONS (5)
  - Aggression [None]
  - Disturbance in attention [None]
  - Insomnia [None]
  - Product substitution issue [None]
  - Drug effect decreased [None]
